FAERS Safety Report 5800520-9 (Version None)
Quarter: 2008Q3

REPORT INFORMATION
  Report Type: 
  Country: None (occurrence: None)
  Receive Date: 20080702
  Receipt Date: 20080702
  Transmission Date: 20090109
  Serious: Yes (Other)
  Sender: FDA-Public Use
  Company Number: None

PATIENT
  Sex: Male
  Weight: 64.8644 kg

DRUGS (2)
  1. PACERONE [Suspect]
     Indication: ATRIAL FIBRILLATION
     Dosage: 200MG QD PO    100MG QD PO
     Route: 048
     Dates: start: 20020418, end: 20040920
  2. PACERONE [Suspect]
     Indication: ATRIAL FIBRILLATION
     Dosage: 200MG QD PO    100MG QD PO
     Route: 048
     Dates: start: 20040920, end: 20041006

REACTIONS (3)
  - ABASIA [None]
  - LIPOMA [None]
  - PAIN [None]
